FAERS Safety Report 22362682 (Version 2)
Quarter: 2024Q1

REPORT INFORMATION
  Report Type: Spontaneous
  Country: US (occurrence: US)
  Receive Date: 20230524
  Receipt Date: 20240102
  Transmission Date: 20240410
  Serious: No
  Sender: FDA-Public Use
  Company Number: US-BEIGENE-BGN-2023-004588

PATIENT

DRUGS (1)
  1. BRUKINSA [Suspect]
     Active Substance: ZANUBRUTINIB
     Indication: Waldenstrom^s macroglobulinaemia
     Dosage: 160 MILLIGRAM, BID
     Route: 048
     Dates: start: 20200610

REACTIONS (9)
  - Thyroid disorder [Unknown]
  - Arthralgia [Unknown]
  - Knee arthroplasty [Unknown]
  - Hypertension [Unknown]
  - SARS-CoV-2 test positive [Unknown]
  - Nasopharyngitis [Unknown]
  - Sinusitis [Unknown]
  - Body temperature increased [Unknown]
  - Respiratory tract congestion [Unknown]

NARRATIVE: CASE EVENT DATE: 20231224
